FAERS Safety Report 8419681-0 (Version None)
Quarter: 2012Q2

REPORT INFORMATION
  Report Type: 
  Country: None (occurrence: None)
  Receive Date: 20120607
  Receipt Date: 20120530
  Transmission Date: 20120825
  Serious: Yes (Other)
  Sender: FDA-Public Use
  Company Number: CH-UCBSA-048097

PATIENT
  Age: 25 Year
  Sex: Female
  Weight: 78 kg

DRUGS (1)
  1. CIMZIA [Suspect]
     Indication: CROHN'S DISEASE
     Route: 058
     Dates: start: 20110523

REACTIONS (2)
  - PREGNANCY [None]
  - CAESAREAN SECTION [None]
